FAERS Safety Report 7580698-X (Version None)
Quarter: 2011Q2

REPORT INFORMATION
  Report Type: 
  Country: None (occurrence: None)
  Receive Date: 20110629
  Receipt Date: 20110407
  Transmission Date: 20111010
  Serious: Yes (Other)
  Sender: FDA-Public Use
  Company Number: FR-CELGENEUS-056-21880-10120044

PATIENT
  Age: 78 Year
  Sex: Male

DRUGS (2)
  1. DEXAMETHASONE [Concomitant]
     Indication: MULTIPLE MYELOMA
     Dates: start: 20080301, end: 20080401
  2. REVLIMID [Suspect]
     Indication: MULTIPLE MYELOMA
     Dosage: 15 MILLIGRAM
     Route: 048
     Dates: start: 20080301, end: 20080401

REACTIONS (1)
  - MENTAL DISORDER [None]
